FAERS Safety Report 9267532 (Version 4)
Quarter: 2013Q4

REPORT INFORMATION
  Report Type: Spontaneous
  Country: US (occurrence: US)
  Receive Date: 20130502
  Receipt Date: 20131126
  Transmission Date: 20140711
  Serious: Yes (Other)
  Sender: FDA-Public Use
  Company Number: US-B.I. PHARMACEUTICALS,INC./RIDGEFIELD-2013-BI-11384BP

PATIENT
  Sex: Female
  Weight: 107 kg

DRUGS (6)
  1. MIRAPEX [Suspect]
     Indication: RESTLESS LEGS SYNDROME
     Dosage: 3 MG
     Route: 048
     Dates: end: 201305
  2. PROZAC 20MG [Concomitant]
     Dosage: DAILY DOSE: 2 EACH MORNING
  3. WELLBUTRIN XL 150MG [Concomitant]
     Dosage: DAILY DOSE: 1 EACH MORNING
  4. CLONAZEPAM 1MG [Concomitant]
     Dosage: DAILY DOSE: 1 MG 2 EACH AT NIGHT.
  5. PRILOSEC [Concomitant]
     Indication: GASTROOESOPHAGEAL REFLUX DISEASE
     Dosage: 40 MG
     Route: 048
  6. ZYRTEC [Concomitant]
     Indication: HOUSE DUST ALLERGY
     Route: 048

REACTIONS (31)
  - Suicide attempt [Unknown]
  - Oedema peripheral [Not Recovered/Not Resolved]
  - Depression [Not Recovered/Not Resolved]
  - Anxiety [Not Recovered/Not Resolved]
  - Gambling [Not Recovered/Not Resolved]
  - Insomnia [Not Recovered/Not Resolved]
  - Weight increased [Not Recovered/Not Resolved]
  - Obsessive-compulsive disorder [Not Recovered/Not Resolved]
  - Back pain [Not Recovered/Not Resolved]
  - Functional gastrointestinal disorder [Not Recovered/Not Resolved]
  - Amnesia [Not Recovered/Not Resolved]
  - Logorrhoea [Unknown]
  - Incoherent [Unknown]
  - Disturbance in attention [Unknown]
  - Hypersomnia [Unknown]
  - Crying [Unknown]
  - Headache [Unknown]
  - Frustration [Unknown]
  - Mood swings [Unknown]
  - Irritability [Unknown]
  - Impaired work ability [Unknown]
  - Mental disorder [Not Recovered/Not Resolved]
  - Detoxification [Not Recovered/Not Resolved]
  - Compulsive shopping [Recovered/Resolved]
  - Obsessive-compulsive disorder [Recovered/Resolved]
  - Bipolar disorder [Not Recovered/Not Resolved]
  - Weight increased [Recovered/Resolved]
  - Weight decreased [Not Recovered/Not Resolved]
  - Loss of employment [Not Recovered/Not Resolved]
  - Somnolence [Recovered/Resolved]
  - Off label use [Recovered/Resolved]
